FAERS Safety Report 4803327-4 (Version None)
Quarter: 2005Q4

REPORT INFORMATION
  Report Type: 
  Country: None (occurrence: None)
  Receive Date: 20051019
  Receipt Date: 20051007
  Transmission Date: 20060501
  Serious: Yes (Other)
  Sender: FDA-Public Use
  Company Number: PHNU2005DE03396

PATIENT
  Sex: Female

DRUGS (2)
  1. AREDIA [Suspect]
  2. ZOMETA [Suspect]
     Dosage: 4 MG EVERY 6 WEEKS
     Route: 042
     Dates: end: 20050913

REACTIONS (2)
  - OSTEOMYELITIS [None]
  - PLASMA CELL DISORDER [None]
